FAERS Safety Report 7229440-2 (Version None)
Quarter: 2011Q1

REPORT INFORMATION
  Report Type: 
  Country: None (occurrence: None)
  Receive Date: 20110117
  Receipt Date: 20110111
  Transmission Date: 20110831
  Serious: Yes (Hospitalization)
  Sender: FDA-Public Use
  Company Number: B0692988A

PATIENT
  Sex: Female

DRUGS (3)
  1. AUGMENTIN [Suspect]
     Indication: LUNG DISORDER
     Route: 048
     Dates: start: 20100608, end: 20100610
  2. CEFTRIAXONE [Suspect]
     Indication: LUNG DISORDER
     Dosage: 1G PER DAY
     Route: 042
     Dates: start: 20100611, end: 20100614
  3. OFLOCET [Suspect]
     Indication: LUNG DISORDER
     Dosage: 200MG PER DAY
     Route: 048
     Dates: start: 20100610, end: 20100614

REACTIONS (4)
  - LIP SWELLING [None]
  - PHARYNGEAL OEDEMA [None]
  - PURPURA [None]
  - PRURITUS [None]
